FAERS Safety Report 9740167 (Version 2)
Quarter: 2013Q4

REPORT INFORMATION
  Report Type: Spontaneous
  Country: NO (occurrence: NO)
  Receive Date: 20131209
  Receipt Date: 20131223
  Transmission Date: 20140711
  Serious: Yes (Other)
  Sender: FDA-Public Use
  Company Number: NO-PFIZER INC-2013345629

PATIENT
  Age: 76 Year
  Sex: Female

DRUGS (10)
  1. ZOLOFT [Suspect]
     Indication: DEPRESSION
     Dosage: 50 MG, UNK
     Route: 048
     Dates: start: 2006
  2. ZOLOFT [Suspect]
     Dosage: 25 MG, UNK
     Route: 048
  3. ZOLOFT [Suspect]
     Dosage: 50 MG, 5 DAYS A WEEK
     Route: 048
     Dates: start: 201304
  4. SOBRIL [Suspect]
     Indication: RESTLESSNESS
     Dosage: 15 MG, ONCE A DAY EVERY EVENING
     Route: 048
  5. SOBRIL [Suspect]
     Indication: ANXIETY
  6. CYMBALTA [Suspect]
     Dosage: UNK
     Dates: start: 20100611, end: 201107
  7. CALCIUM [Concomitant]
     Indication: HYPERTENSION
     Dosage: 5 MG, DAILY
  8. LEVAXIN [Concomitant]
     Indication: HYPOTHYROIDISM
     Dosage: 100 MG, DAILY
  9. PREDNISOLON [Concomitant]
     Indication: RHEUMATOID ARTHRITIS
     Dosage: 2.5 MG, DAILY
  10. EMCONCOR [Concomitant]
     Indication: HYPERTENSION
     Dosage: 5 MG, DAILY

REACTIONS (17)
  - Urinary retention [Unknown]
  - Cystitis [Unknown]
  - Gastric disorder [Unknown]
  - Duodenitis [Unknown]
  - Hypertension [Unknown]
  - Constipation [Unknown]
  - Tremor [Not Recovered/Not Resolved]
  - Feeling abnormal [Unknown]
  - Tinnitus [Unknown]
  - Muscle contractions involuntary [Unknown]
  - Oedema [Unknown]
  - Weight increased [Unknown]
  - Nausea [Unknown]
  - Restlessness [Unknown]
  - Rash [Unknown]
  - Wound [Unknown]
  - Off label use [Unknown]
